FAERS Safety Report 4519536-8 (Version None)
Quarter: 2004Q4

REPORT INFORMATION
  Report Type: 
  Country: None (occurrence: None)
  Receive Date: 20041202
  Receipt Date: 20041118
  Transmission Date: 20050328
  Serious: Yes (Other)
  Sender: FDA-Public Use
  Company Number: 2004VX000914

PATIENT
  Age: 69 Year
  Sex: Female

DRUGS (3)
  1. FLUOROURACIL [Suspect]
     Indication: BREAST CANCER
     Dosage: 1000 MG; UNKNOWN; INTRAVENOUS
     Route: 042
     Dates: start: 20040921, end: 20041026
  2. METHOTREXATE [Suspect]
     Indication: BREAST CANCER
     Dosage: 60 MG; INTRAVENOUS
     Route: 042
     Dates: start: 20040921, end: 20041026
  3. CYCLOPHOSPHAMIDE [Suspect]
     Indication: BREAST CANCER
     Dosage: 100 MG; ORAL
     Route: 048
     Dates: start: 20040921, end: 20041102

REACTIONS (2)
  - NEUTROPENIA [None]
  - PNEUMONIA [None]
